FAERS Safety Report 9721916 (Version 4)
Quarter: 2014Q1

REPORT INFORMATION
  Report Type: Spontaneous
  Country: ES (occurrence: ES)
  Receive Date: 20131202
  Receipt Date: 20140204
  Transmission Date: 20141002
  Serious: Yes (Death, Other)
  Sender: FDA-Public Use
  Company Number: ES-AMGEN-ESPSP2013084354

PATIENT
  Age: 44 Year
  Sex: Male

DRUGS (3)
  1. ENBREL [Suspect]
     Indication: PRODUCT USED FOR UNKNOWN INDICATION
     Dosage: 25 MG, 2X/WEEK
     Route: 058
     Dates: start: 20120802, end: 20130408
  2. ENBREL [Suspect]
     Dosage: 25 MG, WEEKLY
     Route: 058
     Dates: start: 20130409, end: 20130725
  3. ENBREL [Suspect]
     Dosage: 50 MG, EVERY 2 WEEKS
     Route: 058
     Dates: start: 20130726

REACTIONS (3)
  - Sudden death [Fatal]
  - Oral herpes [Unknown]
  - Urinary tract infection [Unknown]
